FAERS Safety Report 15571670 (Version 1)
Quarter: 2018Q4

REPORT INFORMATION
  Report Type: Spontaneous
  Country: US (occurrence: US)
  Receive Date: 20181031
  Receipt Date: 20181031
  Transmission Date: 20190205
  Serious: Yes (Hospitalization, Other)
  Sender: FDA-Public Use
  Company Number: US-ELI_LILLY_AND_COMPANY-US201810012163

PATIENT
  Sex: Female

DRUGS (1)
  1. FORTEO [Suspect]
     Active Substance: TERIPARATIDE
     Indication: OSTEOPOROSIS
     Dosage: 20 UG, DAILY
     Route: 065

REACTIONS (18)
  - Intestinal obstruction [Unknown]
  - Intestinal obstruction [Unknown]
  - Arthralgia [Unknown]
  - Memory impairment [Unknown]
  - Headache [Unknown]
  - Peripheral swelling [Recovered/Resolved]
  - Coma [Recovered/Resolved]
  - Disturbance in attention [Unknown]
  - Asthenia [Unknown]
  - Renal failure [Unknown]
  - Diarrhoea [Unknown]
  - Abdominal discomfort [Unknown]
  - Influenza [Unknown]
  - Malaise [Unknown]
  - Osteoarthritis [Unknown]
  - Sepsis [Unknown]
  - Accidental overdose [Unknown]
  - Alopecia [Unknown]

NARRATIVE: CASE EVENT DATE: 20171224
